FAERS Safety Report 10740177 (Version 3)
Quarter: 2016Q2

REPORT INFORMATION
  Report Type: Spontaneous
  Country: CA (occurrence: CA)
  Receive Date: 20150127
  Receipt Date: 20160607
  Transmission Date: 20160815
  Serious: Yes (Other)
  Sender: FDA-Public Use
  Company Number: CA-ACCORD-028236

PATIENT

DRUGS (2)
  1. METHOTREXATE [Suspect]
     Active Substance: METHOTREXATE
     Indication: ACUTE LYMPHOCYTIC LEUKAEMIA
     Dosage: TWICE EACH WEEK FOR 4 WEEKS;?SUPRATHERAPEUTIC DOSE RECIEVED VIA OMMAYA RESERVOIR
     Route: 037
  2. CYTARABINE/CYTARABINE HYDROCHLORIDE/CYTARABINE OCFOSFATE [Suspect]
     Active Substance: CYTARABINE
     Indication: ACUTE LYMPHOCYTIC LEUKAEMIA
     Dosage: TWICE EACH WEEK FOR 4 WEEKS
     Route: 037

REACTIONS (8)
  - Incorrect dose administered [None]
  - Gastrointestinal haemorrhage [Not Recovered/Not Resolved]
  - Amnesia [Not Recovered/Not Resolved]
  - Medication error [Unknown]
  - Toxicity to various agents [Unknown]
  - Colitis [Not Recovered/Not Resolved]
  - Haematotoxicity [Not Recovered/Not Resolved]
  - Catheter site necrosis [Not Recovered/Not Resolved]
